FAERS Safety Report 10619501 (Version 1)
Quarter: 2014Q4

REPORT INFORMATION
  Report Type: Spontaneous
  Country: US (occurrence: None)
  Receive Date: 20141201
  Receipt Date: 20141201
  Transmission Date: 20150529
  Serious: Yes (Death)
  Sender: FDA-Public Use
  Company Number: None

PATIENT
  Age: 64 Year
  Sex: Male
  Weight: 136.08 kg

DRUGS (2)
  1. CITALOPRAM [Suspect]
     Active Substance: CITALOPRAM HYDROBROMIDE
     Indication: ANXIETY
     Dosage: ONCE DAILY, TAKEN BY MOUTH
     Route: 048
     Dates: start: 20141025, end: 20141117
  2. CITALOPRAM [Suspect]
     Active Substance: CITALOPRAM HYDROBROMIDE
     Indication: DEPRESSION
     Dosage: ONCE DAILY, TAKEN BY MOUTH
     Route: 048
     Dates: start: 20141025, end: 20141117

REACTIONS (14)
  - Panic attack [None]
  - Fear [None]
  - Arrhythmia [None]
  - Somnolence [None]
  - Atrial fibrillation [None]
  - Dizziness [None]
  - Foaming at mouth [None]
  - Hyperhidrosis [None]
  - Unresponsive to stimuli [None]
  - Fatigue [None]
  - Cardiac arrest [None]
  - Anxiety [None]
  - Discomfort [None]
  - Eye movement disorder [None]

NARRATIVE: CASE EVENT DATE: 20141118
